FAERS Safety Report 24868190 (Version 2)
Quarter: 2025Q1

REPORT INFORMATION
  Report Type: Spontaneous
  Country: DE (occurrence: DE)
  Receive Date: 20250121
  Receipt Date: 20250212
  Transmission Date: 20250409
  Serious: Yes (Death, Other)
  Sender: BRACCO
  Company Number: None

PATIENT
  Age: 76 Year
  Sex: Female

DRUGS (8)
  1. IOMEPROL [Suspect]
     Active Substance: IOMEPROL
     Indication: Angiocardiogram
     Route: 042
     Dates: start: 20241106, end: 20241106
  2. FLUTIFORM [Concomitant]
     Active Substance: FLUTIFORM
  3. LEVOTHYROXINE SODIUM [Concomitant]
     Active Substance: LEVOTHYROXINE SODIUM
     Dosage: 1-0-0
  4. BENSERAZIDE\LEVODOPA [Concomitant]
     Active Substance: BENSERAZIDE\LEVODOPA
     Dosage: 1-0-0
     Route: 048
  5. MONTELUKAST [Concomitant]
     Active Substance: MONTELUKAST
     Route: 048
  6. PANTOPRAZOLE SODIUM [Concomitant]
     Active Substance: PANTOPRAZOLE SODIUM
     Dosage: 1-0-0
     Route: 048
  7. PREDNISOLONE [Concomitant]
     Active Substance: PREDNISOLONE
     Indication: Premedication
     Dates: start: 20241107
  8. RAMIPRIL [Concomitant]
     Active Substance: RAMIPRIL
     Route: 048

REACTIONS (10)
  - Multiple organ dysfunction syndrome [Fatal]
  - Circulatory collapse [Unknown]
  - Ventricular fibrillation [Unknown]
  - Ventricular arrhythmia [Unknown]
  - Ventricular hypokinesia [Unknown]
  - Renal impairment [Unknown]
  - Pneumonia aspiration [Recovering/Resolving]
  - Hypersensitivity [Recovered/Resolved]
  - Left ventricular dysfunction [Recovering/Resolving]
  - Transvalvular pressure gradient increased [Recovered/Resolved]

NARRATIVE: CASE EVENT DATE: 20241106
